FAERS Safety Report 18354811 (Version 10)
Quarter: 2022Q4

REPORT INFORMATION
  Report Type: Report from Study
  Country: CO (occurrence: CO)
  Receive Date: 20201007
  Receipt Date: 20221006
  Transmission Date: 20230113
  Serious: Yes (Life-Threatening, Other)
  Sender: FDA-Public Use
  Company Number: NVSC2020CO268330

PATIENT
  Sex: Female
  Weight: 59 kg

DRUGS (8)
  1. ELTROMBOPAG OLAMINE [Suspect]
     Active Substance: ELTROMBOPAG OLAMINE
     Indication: Immune thrombocytopenia
     Dosage: 50 MG, QD (2 OF 25 MG)
     Route: 048
  2. ELTROMBOPAG OLAMINE [Suspect]
     Active Substance: ELTROMBOPAG OLAMINE
     Dosage: 25 MG, QD (DAILY AT NIGHT)
     Route: 048
  3. ELTROMBOPAG OLAMINE [Suspect]
     Active Substance: ELTROMBOPAG OLAMINE
     Dosage: UNK, QD
     Route: 048
  4. FOLIC ACID [Concomitant]
     Active Substance: FOLIC ACID
     Indication: Immune thrombocytopenia
     Dosage: 1 MG, QD (SINCE 3 YEARS AGO)
     Route: 048
  5. ATORVASTATIN [Concomitant]
     Active Substance: ATORVASTATIN
     Indication: Product used for unknown indication
     Dosage: 25 MG, QD
     Route: 048
  6. CALCIUM [Concomitant]
     Active Substance: CALCIUM
     Indication: Bone disorder
     Dosage: 250 MG, QD (SINCE 3 YEARS AGO)
     Route: 048
  7. CHLOROQUINE [Concomitant]
     Active Substance: CHLOROQUINE
     Indication: Immune thrombocytopenia
     Dosage: 250 MG, QD (SINCE 3 YEARS AGO)
     Route: 048
  8. PREDNISOLONE [Concomitant]
     Active Substance: PREDNISOLONE
     Indication: Immune thrombocytopenia
     Dosage: UNK (STARTED APPROXIMATELY 5 MONTHS AGO)
     Route: 065

REACTIONS (16)
  - Gastric varices [Unknown]
  - Hepatic cirrhosis [Unknown]
  - Diabetes mellitus [Unknown]
  - Blood glucose increased [Unknown]
  - Visual impairment [Unknown]
  - Fall [Unknown]
  - Joint dislocation [Unknown]
  - Cataract [Unknown]
  - Drug resistance [Unknown]
  - Contusion [Unknown]
  - Platelet count decreased [Unknown]
  - Fear [Unknown]
  - Platelet count abnormal [Unknown]
  - Arthralgia [Unknown]
  - Asthenia [Unknown]
  - Petechiae [Unknown]
